FAERS Safety Report 5167710-2 (Version None)
Quarter: 2006Q4

REPORT INFORMATION
  Report Type: 
  Country: None (occurrence: None)
  Receive Date: 20061208
  Receipt Date: 20060303
  Transmission Date: 20070319
  Serious: Yes (Other)
  Sender: FDA-Public Use
  Company Number: PHEH2006US02905

PATIENT
  Age: 65 Year
  Sex: Female

DRUGS (3)
  1. AREDIA [Suspect]
     Indication: METASTASES TO BONE
     Dosage: 90MG Q4WKS
     Dates: start: 20020428, end: 20050719
  2. XELODA [Concomitant]
     Indication: METASTATIC NEOPLASM
     Dosage: 2500/DAY 14 DAY Q21D
     Dates: start: 20040901
  3. ARIMIDEX [Concomitant]
     Indication: METASTATIC NEOPLASM
     Dosage: 1 MG, QD
     Dates: start: 20020401, end: 20040901

REACTIONS (15)
  - BONE DISORDER [None]
  - DENTAL CARIES [None]
  - ERYTHEMA [None]
  - IMPAIRED HEALING [None]
  - JAW OPERATION [None]
  - MALIGNANT NEOPLASM PROGRESSION [None]
  - ORAL SOFT TISSUE DISORDER [None]
  - OSTEONECROSIS [None]
  - PERIODONTAL DISEASE [None]
  - SEQUESTRECTOMY [None]
  - SWELLING [None]
  - SWELLING FACE [None]
  - TOOTH EXTRACTION [None]
  - TOOTHACHE [None]
  - WOUND TREATMENT [None]
